FAERS Safety Report 4513369-4 (Version None)
Quarter: 2004Q4

REPORT INFORMATION
  Report Type: 
  Country: None (occurrence: None)
  Receive Date: 20041130
  Receipt Date: 20040825
  Transmission Date: 20050328
  Serious: No
  Sender: FDA-Public Use
  Company Number: US-BRISTOL-MYERS SQUIBB COMPANY-12684817

PATIENT

DRUGS (2)
  1. ERBITUX [Suspect]
     Dosage: 1ST INFUSION
  2. IRINOTECAN HCL [Concomitant]

REACTIONS (2)
  - CHEST DISCOMFORT [None]
  - FEELING HOT [None]
